FAERS Safety Report 12763139 (Version 2)
Quarter: 2016Q4

REPORT INFORMATION
  Report Type: Spontaneous
  Country: US (occurrence: US)
  Receive Date: 20160920
  Receipt Date: 20161227
  Transmission Date: 20170207
  Serious: No
  Sender: FDA-Public Use
  Company Number: US-LUNDBECK-DKLU2018606

PATIENT
  Age: 64 Year
  Sex: Male

DRUGS (1)
  1. NORTHERA [Suspect]
     Active Substance: DROXIDOPA
     Indication: ORTHOSTATIC HYPOTENSION
     Route: 048
     Dates: start: 201511

REACTIONS (11)
  - Feeling hot [Unknown]
  - Furuncle [Unknown]
  - Dysphagia [Unknown]
  - Colitis [Recovering/Resolving]
  - Drug dose omission [Unknown]
  - Memory impairment [Unknown]
  - Dizziness [Unknown]
  - Anxiety [Unknown]
  - Lacrimation increased [Unknown]
  - Gait disturbance [Unknown]
  - Rash [Unknown]

NARRATIVE: CASE EVENT DATE: 201608
